FAERS Safety Report 5656420-0 (Version None)
Quarter: 2008Q1

REPORT INFORMATION
  Report Type: 
  Country: None (occurrence: None)
  Receive Date: 20080309
  Receipt Date: 20080103
  Transmission Date: 20080703
  Serious: No
  Sender: FDA-Public Use
  Company Number: US-BAYER-200810097BCC

PATIENT
  Age: 65 Year
  Sex: Male
  Weight: 100 kg

DRUGS (4)
  1. ALEVE [Suspect]
     Indication: BACK PAIN
     Route: 048
     Dates: start: 20080103, end: 20080103
  2. TRIAMINIC SRT [Concomitant]
  3. SERTRALINE HCL [Concomitant]
  4. ASTHMA INHALER [Concomitant]

REACTIONS (3)
  - HYPERSENSITIVITY [None]
  - PRURITUS [None]
  - SWELLING FACE [None]
